FAERS Safety Report 8902201 (Version 1)
Quarter: 2012Q4

REPORT INFORMATION
  Report Type: 
  Country: AR (occurrence: AR)
  Receive Date: 20121112
  Receipt Date: 20121112
  Transmission Date: 20130627
  Serious: Yes (Other)
  Sender: FDA-Public Use
  Company Number: PHHY2012AR039791

PATIENT
  Age: 72 None
  Sex: Male

DRUGS (1)
  1. ONBREZ [Suspect]
     Indication: CHRONIC OBSTRUCTIVE PULMONARY DISEASE
     Dosage: 300 ug, daily
     Dates: start: 201201

REACTIONS (7)
  - Pneumonia bacterial [Recovering/Resolving]
  - Dyspnoea [Recovering/Resolving]
  - Cough [Recovered/Resolved]
  - Pyrexia [Recovering/Resolving]
  - Increased upper airway secretion [Recovered/Resolved]
  - Productive cough [Recovered/Resolved]
  - Choking [Recovered/Resolved]
